FAERS Safety Report 15367844 (Version 1)
Quarter: 2018Q3

REPORT INFORMATION
  Report Type: Spontaneous
  Country: US (occurrence: US)
  Receive Date: 20180910
  Receipt Date: 20180910
  Transmission Date: 20181010
  Serious: Yes (Other)
  Sender: FDA-Public Use
  Company Number: US-PURDUE-USA-2018-0144679

PATIENT
  Age: 66 Year
  Sex: Female

DRUGS (1)
  1. COLACE [Suspect]
     Active Substance: DOCUSATE SODIUM
     Indication: CONSTIPATION
     Dosage: 100 MG, UNK
     Route: 048
     Dates: start: 20180909

REACTIONS (1)
  - Intestinal obstruction [Unknown]

NARRATIVE: CASE EVENT DATE: 20180909
